FAERS Safety Report 6217147-X (Version None)
Quarter: 2009Q2

REPORT INFORMATION
  Report Type: 
  Country: None (occurrence: None)
  Receive Date: 20090606
  Receipt Date: 20090527
  Transmission Date: 20091009
  Serious: Yes (Hospitalization)
  Sender: FDA-Public Use
  Company Number: PHHY2009PL20729

PATIENT
  Age: 42 Year
  Sex: Male
  Weight: 130 kg

DRUGS (2)
  1. SANDIMMUNE [Suspect]
     Indication: PSORIASIS
     Dosage: 400 MG/24H
     Route: 048
  2. SANDIMMUNE [Suspect]
     Dosage: 300 MG/24H

REACTIONS (3)
  - BLADDER DISORDER [None]
  - BLOOD CREATININE INCREASED [None]
  - BLOOD URIC ACID INCREASED [None]
